FAERS Safety Report 6436127-2 (Version None)
Quarter: 2009Q4

REPORT INFORMATION
  Report Type: 
  Country: None (occurrence: None)
  Receive Date: 20091111
  Receipt Date: 20091103
  Transmission Date: 20100525
  Serious: Yes (Death)
  Sender: FDA-Public Use
  Company Number: US-GENENTECH-293676

PATIENT

DRUGS (2)
  1. AVASTIN [Suspect]
     Indication: BREAST CANCER METASTATIC
  2. ABRAXANE [Suspect]
     Indication: BREAST CANCER METASTATIC

REACTIONS (3)
  - DEATH [None]
  - NEUROPATHY PERIPHERAL [None]
  - TUMOUR NECROSIS [None]
